FAERS Safety Report 10634706 (Version 1)
Quarter: 2014Q4

REPORT INFORMATION
  Report Type: Spontaneous
  Country: PT (occurrence: PT)
  Receive Date: 20141205
  Receipt Date: 20141205
  Transmission Date: 20150529
  Serious: Yes (Hospitalization, Other)
  Sender: FDA-Public Use
  Company Number: PT-TEVA-524539ISR

PATIENT
  Age: 4 Year
  Sex: Female
  Weight: 16.4 kg

DRUGS (1)
  1. CARBOPLATINA TEVA 10 MG/ML SOLUTION FOR INJECTION [Suspect]
     Active Substance: CARBOPLATIN
     Indication: OPTIC GLIOMA
     Dosage: 368 MILLIGRAM DAILY;
     Route: 042
     Dates: start: 20141114, end: 20141114

REACTIONS (2)
  - Cough [Recovered/Resolved]
  - Rash [Recovered/Resolved]

NARRATIVE: CASE EVENT DATE: 20141114
